FAERS Safety Report 5655226-6 (Version None)
Quarter: 2008Q1

REPORT INFORMATION
  Report Type: 
  Country: None (occurrence: None)
  Receive Date: 20080219
  Receipt Date: 20071112
  Transmission Date: 20080703
  Serious: No
  Sender: FDA-Public Use
  Company Number: WAES 0711USA02651

PATIENT
  Sex: Male

DRUGS (4)
  1. JANUVIA [Suspect]
     Indication: DIABETES MELLITUS
     Dosage: 100 MG/DAILY/PO; 50 MG/DAILY/PO
     Route: 048
  2. ACTOS [Concomitant]
  3. AMARYL [Concomitant]
  4. GLUCOPHAGE [Concomitant]

REACTIONS (1)
  - HYPOGLYCAEMIA [None]
